FAERS Safety Report 24430821 (Version 1)
Quarter: 2024Q4

REPORT INFORMATION
  Report Type: Spontaneous
  Country: US (occurrence: US)
  Receive Date: 20241014
  Receipt Date: 20241014
  Transmission Date: 20250114
  Serious: Yes (Hospitalization)
  Sender: HETERO
  Company Number: US-AMAROX PHARMA-HET2024US03504

PATIENT
  Age: 66 Year
  Sex: Male

DRUGS (5)
  1. SILDENAFIL [Suspect]
     Active Substance: SILDENAFIL
     Indication: Right ventricular failure
     Dosage: 20 MILLIGRAM, TID
     Route: 048
  2. SILDENAFIL [Suspect]
     Active Substance: SILDENAFIL
     Indication: Pulmonary hypertension
  3. TREPROSTINIL [Concomitant]
     Active Substance: TREPROSTINIL
     Indication: Pulmonary hypertension
     Dosage: INHALED TREPROSTINIL FOUR TIMES DAILY
  4. TREPROSTINIL [Concomitant]
     Active Substance: TREPROSTINIL
     Indication: Right ventricular failure
  5. OXYGEN [Concomitant]
     Active Substance: OXYGEN
     Indication: Combined pulmonary fibrosis and emphysema
     Dosage: 2 LITER
     Route: 065

REACTIONS (1)
  - Acute psychosis [Recovered/Resolved]
